FAERS Safety Report 4703219-5 (Version None)
Quarter: 2005Q2

REPORT INFORMATION
  Report Type: 
  Country: None (occurrence: None)
  Receive Date: 20050628
  Receipt Date: 20050606
  Transmission Date: 20051028
  Serious: Yes (Other)
  Sender: FDA-Public Use
  Company Number: 2005081197

PATIENT
  Age: 39 Year
  Sex: Male
  Weight: 80.2867 kg

DRUGS (3)
  1. ZIPRASIDONE (CAPS)  (ZIPRASIDONE) [Suspect]
     Indication: SCHIZOPHRENIA
     Dosage: 160 MG (80 MG, 2 IN 1 D), ORAL
     Route: 048
     Dates: start: 20010424
  2. ACETAMINOPHEN [Concomitant]
  3. COGENTIN [Concomitant]

REACTIONS (2)
  - CATARACT CORTICAL [None]
  - TARDIVE DYSKINESIA [None]
